FAERS Safety Report 14128064 (Version 3)
Quarter: 2017Q4

REPORT INFORMATION
  Report Type: Spontaneous
  Country: IT (occurrence: IT)
  Receive Date: 20171026
  Receipt Date: 20171204
  Transmission Date: 20180321
  Serious: Yes (Other)
  Sender: FDA-Public Use
  Company Number: IT-AUROBINDO-AUR-APL-2017-41715

PATIENT
  Age: 91 Year
  Sex: Male

DRUGS (14)
  1. DIAMOX                             /00016901/ [Concomitant]
     Active Substance: ACETAZOLAMIDE
     Indication: PRODUCT USED FOR UNKNOWN INDICATION
     Route: 048
  2. QUETIAPINE. [Concomitant]
     Active Substance: QUETIAPINE
     Indication: PRODUCT USED FOR UNKNOWN INDICATION
     Dosage: 25 MG, DAILY
     Route: 048
  3. LANSOX [Concomitant]
     Active Substance: LANSOPRAZOLE
     Indication: PRODUCT USED FOR UNKNOWN INDICATION
     Route: 048
  4. COSOPT [Concomitant]
     Active Substance: DORZOLAMIDE HYDROCHLORIDE\TIMOLOL MALEATE
     Route: 057
  5. RYTMONORM [Concomitant]
     Active Substance: PROPAFENONE
     Route: 048
  6. COSOPT [Concomitant]
     Active Substance: DORZOLAMIDE HYDROCHLORIDE\TIMOLOL MALEATE
     Indication: PRODUCT USED FOR UNKNOWN INDICATION
  7. ASCRIPTIN [Concomitant]
     Active Substance: ASPIRIN
     Indication: PRODUCT USED FOR UNKNOWN INDICATION
     Route: 048
  8. ASCRIPTIN [Concomitant]
     Active Substance: ASPIRIN
     Route: 048
  9. RYTMONORM [Concomitant]
     Active Substance: PROPAFENONE
     Indication: PRODUCT USED FOR UNKNOWN INDICATION
     Route: 048
  10. DAFLON                             /00426001/ [Concomitant]
     Active Substance: DIOSMIN
     Indication: PRODUCT USED FOR UNKNOWN INDICATION
     Route: 048
  11. RAMIPRIL TABLET [Suspect]
     Active Substance: RAMIPRIL
     Indication: HYPERTENSION
     Dosage: 5 MG, DAILY
     Route: 048
     Dates: start: 20170801, end: 20170810
  12. FUROSEMIDE. [Suspect]
     Active Substance: FUROSEMIDE
     Indication: HYPERTENSION
     Dosage: 25 MG, DAILY
     Route: 048
     Dates: start: 20170801, end: 20170810
  13. QUETIAPINE. [Concomitant]
     Active Substance: QUETIAPINE
     Route: 048
  14. LANSOX [Concomitant]
     Active Substance: LANSOPRAZOLE
     Route: 048

REACTIONS (4)
  - Loss of consciousness [Recovering/Resolving]
  - Syncope [Recovering/Resolving]
  - Sopor [Recovering/Resolving]
  - Presyncope [Recovering/Resolving]

NARRATIVE: CASE EVENT DATE: 20170810
